FAERS Safety Report 5245017-2 (Version None)
Quarter: 2007Q1

REPORT INFORMATION
  Report Type: 
  Country: None (occurrence: None)
  Receive Date: 20070221
  Receipt Date: 20070221
  Transmission Date: 20070707
  Serious: Yes (Other)
  Sender: FDA-Public Use
  Company Number: None

PATIENT
  Sex: Female

DRUGS (2)
  1. DEEP SEA NASAL SPRAY  PROPHARMA INC. [Suspect]
     Indication: DRUG THERAPY
  2. DEEP SEA NASAL SPRAY  PROPHARMA INC. [Suspect]
     Indication: NASAL DRYNESS

REACTIONS (5)
  - COUGH [None]
  - DYSPNOEA [None]
  - NASAL DISCOMFORT [None]
  - PHARYNGOLARYNGEAL PAIN [None]
  - THROAT IRRITATION [None]
